FAERS Safety Report 7934410-2 (Version None)
Quarter: 2011Q4

REPORT INFORMATION
  Report Type: 
  Country: None (occurrence: None)
  Receive Date: 20111122
  Receipt Date: 20111118
  Transmission Date: 20120403
  Serious: Yes (Other)
  Sender: FDA-Public Use
  Company Number: US-GLAXOSMITHKLINE-A0949147A

PATIENT
  Age: 70 Year
  Sex: Female

DRUGS (3)
  1. ALBUTEROL INHALER [Concomitant]
  2. FLOVENT [Suspect]
     Indication: ASTHMA
     Dosage: 1PUFF TWICE PER DAY
     Route: 055
     Dates: start: 20101001
  3. XOPENEX [Concomitant]
     Route: 055

REACTIONS (6)
  - RESPIRATION ABNORMAL [None]
  - DYSPNOEA [None]
  - RASH MACULAR [None]
  - PRODUCT QUALITY ISSUE [None]
  - CHOKING [None]
  - WHEEZING [None]
